FAERS Safety Report 8315056 (Version 3)
Quarter: 2015Q1

REPORT INFORMATION
  Report Type: Spontaneous
  Country: JP (occurrence: JP)
  Receive Date: 20111229
  Receipt Date: 20150324
  Transmission Date: 20150721
  Serious: Yes (Death)
  Sender: FDA-Public Use
  Company Number: JP-PFIZER INC-2011314255

PATIENT
  Age: 73 Year
  Sex: Male

DRUGS (19)
  1. LOXOPROFEN SODIUM [Concomitant]
     Active Substance: LOXOPROFEN SODIUM
     Indication: CANCER PAIN
     Dosage: 60 MG, AS NEEDED
     Route: 048
     Dates: start: 20110924, end: 20111213
  2. LEXOTAN [Suspect]
     Active Substance: BROMAZEPAM
     Indication: DEPRESSION
     Dosage: 4 MG, AS NEEDED
     Route: 048
     Dates: start: 20111108, end: 20111202
  3. NEW LECICARBON [Concomitant]
     Active Substance: SODIUM BICARBONATE\SODIUM PHOSPHATE, MONOBASIC
     Indication: CONSTIPATION PROPHYLAXIS
     Dosage: 1 DF, AS NEEDED
     Route: 054
     Dates: start: 20111108, end: 20111213
  4. MAGMITT [Concomitant]
     Active Substance: MAGNESIUM OXIDE
     Indication: CONSTIPATION
     Dosage: 500 MG, 3X/DAY
     Route: 048
     Dates: start: 20110924, end: 20111213
  5. OXYCONTIN [Concomitant]
     Active Substance: OXYCODONE HYDROCHLORIDE
     Indication: CANCER PAIN
     Dosage: 40 MG, 2X/DAY
     Route: 048
     Dates: start: 20111105, end: 20111208
  6. HYDROPHILIC PETROLATUM. [Concomitant]
     Active Substance: HYDROPHILIC PETROLATUM
     Indication: ASTEATOSIS
     Dosage: UNK
     Route: 062
     Dates: start: 20111108, end: 20111213
  7. SUTENT [Suspect]
     Active Substance: SUNITINIB MALATE
     Indication: RENAL CELL CARCINOMA
     Dosage: 37.5 MG, 1X/DAY
     Route: 048
     Dates: start: 20111027, end: 20111029
  8. OMEPRAZOLE. [Concomitant]
     Active Substance: OMEPRAZOLE
     Indication: GASTRITIS PROPHYLAXIS
     Dosage: 20 MG, 1X/DAY
     Route: 048
     Dates: start: 20111011, end: 20111213
  9. SUTENT [Suspect]
     Active Substance: SUNITINIB MALATE
     Dosage: 37.5 MG, 1X/DAY
     Route: 048
     Dates: start: 20111126, end: 20111129
  10. PURSENNID [Concomitant]
     Active Substance: SENNOSIDES A AND B
     Indication: CONSTIPATION
     Dosage: 24 MG, 1X/DAY
     Route: 048
     Dates: start: 20110924, end: 20111213
  11. LEXOTAN [Suspect]
     Active Substance: BROMAZEPAM
     Dosage: 2 MG, 2X/DAY
     Route: 048
     Dates: start: 20111118, end: 20111202
  12. TETRAMIDE [Suspect]
     Active Substance: MIANSERIN
     Indication: DEPRESSION
     Dosage: 10 MG, 1X/DAY
     Route: 048
     Dates: start: 20111125, end: 20111213
  13. REBAMIPIDE [Concomitant]
     Active Substance: REBAMIPIDE
     Indication: GASTRITIS PROPHYLAXIS
     Dosage: 100 MG, AS NEEDED
     Route: 048
     Dates: start: 20110924, end: 20111213
  14. BROTIZOLAM [Concomitant]
     Active Substance: BROTIZOLAM
     Indication: INSOMNIA
     Dosage: 0.25 MG, AS NEEDED
     Route: 048
     Dates: start: 20110924, end: 20111213
  15. MYCOSPOR [Concomitant]
     Active Substance: BIFONAZOLE
     Indication: PROPHYLAXIS
     Dosage: UNK
     Route: 062
     Dates: start: 20111102, end: 20111213
  16. AZUNOL [Concomitant]
     Active Substance: SODIUM GUALENATE
     Indication: PROPHYLAXIS
     Dosage: UNK
     Route: 062
     Dates: start: 20111117, end: 20111213
  17. TEGRETOL [Concomitant]
     Active Substance: CARBAMAZEPINE
     Indication: ANALGESIC INTERVENTION SUPPORTIVE THERAPY
     Dosage: 100 MG, 2X/DAY
     Route: 048
     Dates: start: 20110928, end: 20111213
  18. NOVAMIN [Concomitant]
     Active Substance: PROCHLORPERAZINE MALEATE
     Indication: PROPHYLAXIS
     Dosage: 5 MG, 3X/DAY
     Route: 048
     Dates: start: 20111003, end: 20111213
  19. OXINORM [Concomitant]
     Active Substance: OXYCODONE HYDROCHLORIDE
     Indication: CANCER PAIN
     Dosage: 10 MG, AS NEEDED
     Route: 048
     Dates: start: 20111105, end: 20111208

REACTIONS (1)
  - Interstitial lung disease [Fatal]

NARRATIVE: CASE EVENT DATE: 20111202
